FAERS Safety Report 24090845 (Version 3)
Quarter: 2024Q3

REPORT INFORMATION
  Report Type: Spontaneous
  Country: KR (occurrence: KR)
  Receive Date: 20240715
  Receipt Date: 20240812
  Transmission Date: 20241016
  Serious: Yes (Hospitalization, Other)
  Sender: SAMSUNG BIOEPIS
  Company Number: KR-SAMSUNG BIOEPIS-SB-2024-20545

PATIENT

DRUGS (1)
  1. ADALIMUMAB [Suspect]
     Active Substance: ADALIMUMAB
     Indication: Product used for unknown indication
     Route: 065

REACTIONS (6)
  - Malignant neoplasm of eye [Unknown]
  - Erectile dysfunction [Unknown]
  - Sinusitis [Not Recovered/Not Resolved]
  - Pruritus [Unknown]
  - Migraine [Unknown]
  - Diplopia [Unknown]
